FAERS Safety Report 4592608-8 (Version None)
Quarter: 2005Q1

REPORT INFORMATION
  Report Type: 
  Country: None (occurrence: None)
  Receive Date: 20050218
  Receipt Date: 20051105
  Transmission Date: 20050727
  Serious: Yes (Life-Threatening)
  Sender: FDA-Public Use
  Company Number: 2004-BP-12385NB

PATIENT
  Age: 56 Year
  Sex: Male

DRUGS (6)
  1. BI-SIFROL TABLETS (PRAMIPEXOLE DIHYDROCHLORIDE) (TA) [Suspect]
     Indication: PARKINSON'S DISEASE
     Dosage: 2 MG PO
     Route: 048
     Dates: start: 20040709
  2. MENESIT (SINEMET) (TA) [Concomitant]
  3. PERMAX (PERGOLDE MESILATE) (TA) [Concomitant]
  4. LENDORMIN (BROTIZOLAM) (TA) [Concomitant]
  5. EBRANTIL (URAPIDIL) (KA) [Concomitant]
  6. FP (SELEGILINE HYDROCHLORIDE) (TA) [Concomitant]

REACTIONS (2)
  - ROAD TRAFFIC ACCIDENT [None]
  - SUDDEN ONSET OF SLEEP [None]
